FAERS Safety Report 7217264-1 (Version None)
Quarter: 2011Q1

REPORT INFORMATION
  Report Type: 
  Country: None (occurrence: None)
  Receive Date: 20110110
  Receipt Date: 20101221
  Transmission Date: 20110831
  Serious: No
  Sender: FDA-Public Use
  Company Number: US-B.I. PHARMACEUTICALS,INC./RIDGEFIELD-2010-BP-15265BP

PATIENT
  Sex: Male

DRUGS (11)
  1. PRADAXA [Suspect]
     Indication: ATRIAL FIBRILLATION
     Dosage: 300 MG
     Route: 048
     Dates: start: 20101218
  2. DIGOXIN [Concomitant]
     Indication: TACHYCARDIA
  3. LASIX [Concomitant]
     Indication: HYPERTENSION
  4. CARVEDILOL [Concomitant]
     Indication: HYPERTENSION
  5. NIASPAN [Concomitant]
     Indication: BLOOD CHOLESTEROL INCREASED
  6. HUMALOG [Concomitant]
     Indication: DIABETES MELLITUS
  7. EFFEXOR [Concomitant]
     Indication: DEPRESSION
  8. KLOR-CON [Concomitant]
     Indication: HYPERTENSION
  9. LISINOPRIL [Concomitant]
     Indication: HYPERTENSION
  10. DILTIAZEM [Concomitant]
     Indication: HYPERTENSION
  11. LANTUS [Concomitant]
     Indication: DIABETES MELLITUS

REACTIONS (2)
  - ASTHENIA [None]
  - HYPERSOMNIA [None]
